FAERS Safety Report 5661799-X (Version None)
Quarter: 2008Q1

REPORT INFORMATION
  Report Type: 
  Country: None (occurrence: None)
  Receive Date: 20080312
  Receipt Date: 20080306
  Transmission Date: 20080703
  Serious: Yes (Other)
  Sender: FDA-Public Use
  Company Number: US-ASTRAZENECA-2008UW04583

PATIENT
  Age: 65 Year
  Sex: Male
  Weight: 90.7 kg

DRUGS (4)
  1. TOPROL-XL [Suspect]
     Indication: ANGINA PECTORIS
     Route: 048
     Dates: start: 20070101
  2. TOPROL-XL [Suspect]
     Indication: BLOOD PRESSURE
     Route: 048
     Dates: start: 20070101
  3. PLAVIX [Concomitant]
  4. CITALTHAM [Concomitant]

REACTIONS (1)
  - HAEMOLYTIC ANAEMIA [None]
